FAERS Safety Report 9051297 (Version 1)
Quarter: 2013Q1

REPORT INFORMATION
  Report Type: Spontaneous
  Country: CA (occurrence: CA)
  Receive Date: 20130206
  Receipt Date: 20130206
  Transmission Date: 20140127
  Serious: Yes (Other)
  Sender: FDA-Public Use
  Company Number: PHHY2011CA34115

PATIENT
  Sex: Female
  Weight: 79.82 kg

DRUGS (8)
  1. EXTAVIA [Suspect]
     Indication: CLINICALLY ISOLATED SYNDROME
     Dosage: 8 MIU, EVERY OTHER DAY IN THE MORNING
     Route: 058
     Dates: start: 20110329, end: 20121114
  2. GABAPENTIN [Concomitant]
     Dosage: UNK UKN, UNK
  3. VITAMIN D [Concomitant]
     Dosage: UNK UKN, UNK
  4. CALCIUM [Concomitant]
     Dosage: UNK UKN, UNK
  5. MAGNESIUM [Concomitant]
     Dosage: UNK UKN, UNK
  6. ZINC [Concomitant]
     Dosage: UNK UKN, UNK
  7. MULTIVITAMINS [Concomitant]
     Dosage: UNK UKN, UNK
  8. IUD NOS [Concomitant]
     Dosage: UNK UKN, UNK

REACTIONS (9)
  - Optic neuritis [Unknown]
  - Depression [Unknown]
  - Anxiety disorder [Unknown]
  - Insomnia [Unknown]
  - Injection site erythema [Unknown]
  - Chills [Recovered/Resolved]
  - Injection site pain [Unknown]
  - Application site bruise [Unknown]
  - Injection site mass [Unknown]
